FAERS Safety Report 8814693 (Version 1)
Quarter: 2012Q4

REPORT INFORMATION
  Report Type: Spontaneous
  Country: GB (occurrence: None)
  Receive Date: 20120926
  Receipt Date: 20120926
  Transmission Date: 20130627
  Serious: Yes (Hospitalization)
  Sender: FDA-Public Use
  Company Number: 1418452

PATIENT
  Age: 41 Year
  Sex: Female

DRUGS (5)
  1. CEFTRIAXONE SODIUM [Suspect]
     Indication: ANTIBIOTIC THERAPY
     Route: 042
     Dates: start: 20120504
  2. CO-TRIMOXAZOLE [Suspect]
     Route: 042
     Dates: start: 20120504
  3. FERROUS SULFATE [Concomitant]
  4. AMOXICILLIN [Concomitant]
  5. CLARITHROMYCIN [Concomitant]

REACTIONS (5)
  - Acute psychosis [None]
  - Confusional state [None]
  - Aggression [None]
  - Stress [None]
  - Refusal of treatment by patient [None]
